FAERS Safety Report 21794642 (Version 1)
Quarter: 2022Q4

REPORT INFORMATION
  Report Type: Spontaneous
  Country: US (occurrence: US)
  Receive Date: 20221229
  Receipt Date: 20221229
  Transmission Date: 20230113
  Serious: Yes (Other)
  Sender: FDA-Public Use
  Company Number: US-BAYER-2022P032447

PATIENT
  Age: 40 Year
  Sex: Male

DRUGS (1)
  1. ASPIRIN [Suspect]
     Active Substance: ASPIRIN

REACTIONS (9)
  - Renal cyst haemorrhage [None]
  - Contraindicated product administered [None]
  - Labelled drug-drug interaction medication error [None]
  - Haematuria [None]
  - Proteinuria [None]
  - Nephrotic syndrome [None]
  - Abdominal pain [None]
  - Glomerulonephropathy [None]
  - Oedema peripheral [None]
